FAERS Safety Report 15637224 (Version 1)
Quarter: 2018Q4

REPORT INFORMATION
  Report Type: Spontaneous
  Country: US (occurrence: US)
  Receive Date: 20181120
  Receipt Date: 20181120
  Transmission Date: 20190205
  Serious: No
  Sender: FDA-Public Use
  Company Number: US-JNJFOC-20180428471

PATIENT
  Age: 65 Year
  Sex: Female

DRUGS (3)
  1. IMBRUVICA [Suspect]
     Active Substance: IBRUTINIB
     Indication: CHRONIC LYMPHOCYTIC LEUKAEMIA
     Route: 048
     Dates: start: 201804
  2. SIMVASTATIN. [Concomitant]
     Active Substance: SIMVASTATIN
  3. ACYCLOVIR. [Concomitant]
     Active Substance: ACYCLOVIR

REACTIONS (6)
  - Secretion discharge [Unknown]
  - Respiratory tract congestion [Recovering/Resolving]
  - Bronchial disorder [Recovering/Resolving]
  - Orthopnoea [Not Recovered/Not Resolved]
  - Pain [Recovering/Resolving]
  - Peripheral swelling [Recovering/Resolving]

NARRATIVE: CASE EVENT DATE: 201804
